FAERS Safety Report 7221106-8 (Version None)
Quarter: 2011Q1

REPORT INFORMATION
  Report Type: 
  Country: None (occurrence: None)
  Receive Date: 20110112
  Receipt Date: 20110105
  Transmission Date: 20110831
  Serious: Yes (Other)
  Sender: FDA-Public Use
  Company Number: US-PFIZER INC-2006088325

PATIENT
  Sex: Male
  Weight: 104 kg

DRUGS (5)
  1. LAMICTAL [Concomitant]
     Dosage: UNK
  2. TAMSULOSIN HYDROCHLORIDE [Concomitant]
  3. ATENOLOL [Concomitant]
  4. LIPITOR [Suspect]
     Dosage: UNK
     Route: 048
     Dates: start: 20021121, end: 20060801
  5. ACETYLSALICYLIC ACID [Concomitant]

REACTIONS (7)
  - FATIGUE [None]
  - AMNESIA [None]
  - DEPRESSION [None]
  - BALANCE DISORDER [None]
  - IRRITABILITY [None]
  - NEUROPATHY PERIPHERAL [None]
  - CONFUSIONAL STATE [None]
